FAERS Safety Report 8458591-X (Version None)
Quarter: 2012Q2

REPORT INFORMATION
  Report Type: 
  Country: None (occurrence: None)
  Receive Date: 20120622
  Receipt Date: 20120612
  Transmission Date: 20120825
  Serious: Yes (Other)
  Sender: FDA-Public Use
  Company Number: US-JNJFOC-20120606492

PATIENT
  Age: 22 Year

DRUGS (1)
  1. LEVAQUIN [Suspect]
     Indication: PHARYNGITIS
     Dosage: 250-750 MG DAILY
     Route: 065

REACTIONS (1)
  - UVEITIS [None]
